FAERS Safety Report 7338199-X (Version None)
Quarter: 2011Q1

REPORT INFORMATION
  Report Type: 
  Country: None (occurrence: None)
  Receive Date: 20110224
  Receipt Date: 20110214
  Transmission Date: 20110831
  Serious: Yes (Death)
  Sender: FDA-Public Use
  Company Number: MSTR-NO-1102S-0072

PATIENT
  Age: 73 Year
  Sex: Male

DRUGS (1)
  1. METASTRON [Suspect]
     Indication: METASTATIC PAIN
     Dosage: 2 MBQ PER KG, SINGLE DOSE, I.V.
     Route: 042
     Dates: start: 20101217, end: 20101217

REACTIONS (4)
  - GASTROINTESTINAL HAEMORRHAGE [None]
  - PLATELET COUNT DECREASED [None]
  - HAEMOGLOBIN DECREASED [None]
  - CEREBELLAR HAEMORRHAGE [None]
